FAERS Safety Report 16006358 (Version 1)
Quarter: 2019Q1

REPORT INFORMATION
  Report Type: Spontaneous
  Country: US (occurrence: US)
  Receive Date: 20190225
  Receipt Date: 20190225
  Transmission Date: 20190418
  Serious: No
  Sender: FDA-Public Use
  Company Number: US-GLAXOSMITHKLINE-US2019AMR030282

PATIENT
  Age: 55 Year
  Sex: Female

DRUGS (1)
  1. ADVAIR DISKUS [Suspect]
     Active Substance: FLUTICASONE PROPIONATE\SALMETEROL XINAFOATE
     Indication: ASTHMA
     Dosage: UNK
     Route: 055
     Dates: start: 2016

REACTIONS (6)
  - Cough [Unknown]
  - Increased viscosity of bronchial secretion [Unknown]
  - Malaise [Unknown]
  - Pyrexia [Unknown]
  - Productive cough [Unknown]
  - Ear pain [Unknown]

NARRATIVE: CASE EVENT DATE: 20190217
